FAERS Safety Report 6073838-5 (Version None)
Quarter: 2009Q1

REPORT INFORMATION
  Report Type: 
  Country: None (occurrence: None)
  Receive Date: 20090209
  Receipt Date: 20090209
  Transmission Date: 20090719
  Serious: Yes (Death, Life-Threatening, Hospitalization, Disabling, Other)
  Sender: FDA-Public Use
  Company Number: None

PATIENT
  Age: 66 Year
  Sex: Male
  Weight: 185 kg

DRUGS (1)
  1. MITOXANTRONE [Suspect]
     Indication: ACUTE MONOCYTIC LEUKAEMIA
     Dates: start: 20060601, end: 20060625

REACTIONS (8)
  - ANOXIC ENCEPHALOPATHY [None]
  - BRAIN INJURY [None]
  - CARDIAC DISORDER [None]
  - CARDIO-RESPIRATORY ARREST [None]
  - HYPOXIC ENCEPHALOPATHY [None]
  - LEUKAEMIA [None]
  - MYOCARDIAL INFARCTION [None]
  - RESPIRATORY FAILURE [None]
